FAERS Safety Report 15669349 (Version 1)
Quarter: 2018Q4

REPORT INFORMATION
  Report Type: Report from Study
  Country: DE (occurrence: DE)
  Receive Date: 20181129
  Receipt Date: 20181129
  Transmission Date: 20190205
  Serious: Yes (Life-Threatening, Hospitalization, Other)
  Sender: FDA-Public Use
  Company Number: DE-ACCORD-094086

PATIENT
  Age: 63 Year
  Sex: Male

DRUGS (4)
  1. FLUOROURACIL. [Suspect]
     Active Substance: FLUOROURACIL
     Indication: PRODUCT USED FOR UNKNOWN INDICATION
  2. TRASTUZUMAB. [Suspect]
     Active Substance: TRASTUZUMAB
     Indication: HER-2 POSITIVE GASTRIC CANCER
     Dosage: DAILY DOSE: 535 MG MILLGRAM(S) EVERY 3 WEEKS
     Route: 042
     Dates: start: 20170510, end: 20170626
  3. CISPLATIN. [Suspect]
     Active Substance: CISPLATIN
     Indication: PRODUCT USED FOR UNKNOWN INDICATION
  4. PERJETA [Suspect]
     Active Substance: PERTUZUMAB
     Indication: HER-2 POSITIVE GASTRIC CANCER
     Dosage: DAILY DOSE: 840 MG MILLGRAM(S) EVERY 3 WEEKS
     Route: 042
     Dates: start: 20170510, end: 20170626

REACTIONS (2)
  - Empyema [Recovered/Resolved]
  - Anastomotic leak [Recovered/Resolved]

NARRATIVE: CASE EVENT DATE: 20171001
